FAERS Safety Report 8070417-5 (Version None)
Quarter: 2012Q1

REPORT INFORMATION
  Report Type: 
  Country: None (occurrence: None)
  Receive Date: 20120125
  Receipt Date: 20120116
  Transmission Date: 20120608
  Serious: Yes (Other)
  Sender: FDA-Public Use
  Company Number: FR-JNJFOC-20120108379

PATIENT
  Age: 82 Year
  Sex: Male

DRUGS (2)
  1. ZYTIGA [Suspect]
     Indication: PROSTATE CANCER METASTATIC
     Route: 048
  2. ANTIHYPERTENSION MEDICATION [Concomitant]
     Indication: HYPERTENSION
     Route: 065

REACTIONS (3)
  - BLOOD CREATININE INCREASED [None]
  - PYELONEPHRITIS [None]
  - DECREASED APPETITE [None]
